FAERS Safety Report 20667561 (Version 1)
Quarter: 2022Q2

REPORT INFORMATION
  Report Type: Report from Study
  Country: US (occurrence: US)
  Receive Date: 20220404
  Receipt Date: 20220404
  Transmission Date: 20220720
  Serious: Yes (Other)
  Sender: FDA-Public Use
  Company Number: US-ABBVIE-22K-163-4340801-00

PATIENT
  Age: 76 Year
  Sex: Male

DRUGS (2)
  1. IMBRUVICA [Suspect]
     Active Substance: IBRUTINIB
     Indication: Chronic lymphocytic leukaemia
     Route: 048
     Dates: start: 201909
  2. XARELTO [Suspect]
     Active Substance: RIVAROXABAN
     Indication: Product used for unknown indication
     Route: 065

REACTIONS (4)
  - Neuralgia [Unknown]
  - Pain in extremity [Unknown]
  - Haemorrhage [Unknown]
  - Fall [Unknown]

NARRATIVE: CASE EVENT DATE: 20220328
